FAERS Safety Report 7315143-2 (Version None)
Quarter: 2011Q1

REPORT INFORMATION
  Report Type: 
  Country: None (occurrence: None)
  Receive Date: 20110215
  Receipt Date: 20110201
  Transmission Date: 20110831
  Serious: Yes (Other)
  Sender: FDA-Public Use
  Company Number: 2011EN000032

PATIENT
  Age: 4 Year
  Sex: Male
  Weight: 13 kg

DRUGS (2)
  1. ADAGEN [Suspect]
     Indication: COMBINED IMMUNODEFICIENCY
     Dosage: 30 IU/KG; QW; IM, 375 IU; QW; IM
     Route: 030
     Dates: start: 20110126
  2. ADAGEN [Suspect]
     Indication: COMBINED IMMUNODEFICIENCY
     Dosage: 30 IU/KG; QW; IM, 375 IU; QW; IM
     Route: 030
     Dates: start: 20070207

REACTIONS (2)
  - LYMPHOCYTE COUNT DECREASED [None]
  - TREATMENT FAILURE [None]
